FAERS Safety Report 4280417-9 (Version None)
Quarter: 2004Q1

REPORT INFORMATION
  Report Type: 
  Country: None (occurrence: None)
  Receive Date: 20040128
  Receipt Date: 20040128
  Transmission Date: 20041129
  Serious: Yes (Hospitalization)
  Sender: FDA-Public Use
  Company Number: None

PATIENT
  Sex: Female
  Weight: 78.0187 kg

DRUGS (5)
  1. CISPLATIN 55 MG 11/20/02 [Suspect]
     Indication: CARCINOMA
     Dosage: 55 MG IV
     Route: 042
     Dates: start: 20021120
  2. CISPLATIN 55 MG 11/20/02 [Suspect]
     Indication: NECK MASS
     Dosage: 55 MG IV
     Route: 042
     Dates: start: 20021120
  3. METOPROLOL [Suspect]
     Dosage: PO
     Route: 048
  4. RADIATION THERAPY [Concomitant]
  5. ... [Concomitant]

REACTIONS (5)
  - ABDOMINAL PAIN [None]
  - DEHYDRATION [None]
  - FAECAL OCCULT BLOOD POSITIVE [None]
  - HYPOTENSION [None]
  - SYNCOPE [None]
